FAERS Safety Report 6782970-X (Version None)
Quarter: 2010Q2

REPORT INFORMATION
  Report Type: 
  Country: None (occurrence: None)
  Receive Date: 20100622
  Receipt Date: 20100611
  Transmission Date: 20101027
  Serious: Yes (Hospitalization)
  Sender: FDA-Public Use
  Company Number: SE-JNJFOC-20100603594

PATIENT
  Sex: Male

DRUGS (12)
  1. IPREN [Suspect]
     Indication: ANTIINFLAMMATORY THERAPY
     Route: 048
  2. IPREN [Suspect]
     Indication: ANTIPYRESIS
     Route: 048
  3. IPREN [Suspect]
     Indication: ANALGESIC THERAPY
     Route: 048
  4. ALVEDON [Suspect]
     Indication: DRUG USE FOR UNKNOWN INDICATION
     Route: 048
  5. METFORMIN HCL [Suspect]
     Indication: DIABETES MELLITUS
     Route: 048
  6. BYETTA [Suspect]
     Indication: DIABETES MELLITUS
     Dosage: 20 RGD
     Route: 058
  7. ENALAPRIL MALEATE [Suspect]
     Indication: DRUG USE FOR UNKNOWN INDICATION
     Dosage: 1 DFD
     Route: 048
  8. INSULIN [Concomitant]
     Indication: DIABETES MELLITUS
     Route: 050
  9. SIMVASTATIN [Concomitant]
  10. BEHEPAN [Concomitant]
     Indication: DRUG USE FOR UNKNOWN INDICATION
     Route: 048
  11. TENORMIN [Concomitant]
     Indication: DRUG USE FOR UNKNOWN INDICATION
     Route: 048
  12. TROMBYL [Concomitant]
     Indication: DRUG USE FOR UNKNOWN INDICATION
     Route: 048

REACTIONS (2)
  - HEPATIC FAILURE [None]
  - RENAL FAILURE ACUTE [None]
